FAERS Safety Report 7691593 (Version 2)
Quarter: 2013Q3

REPORT INFORMATION
  Report Type: Spontaneous
  Country: US (occurrence: US)
  Receive Date: 20101203
  Receipt Date: 20130729
  Transmission Date: 20140515
  Serious: No
  Sender: FDA-Public Use
  Company Number: US-PFIZER INC-2010147479

PATIENT
  Age: 63 Year
  Sex: Female
  Weight: 63.49 kg

DRUGS (11)
  1. LIPITOR [Suspect]
     Indication: BLOOD CHOLESTEROL INCREASED
     Dosage: 40 MG, DAILY
     Route: 048
     Dates: start: 20100903
  2. LIPITOR [Suspect]
     Dosage: UNK
  3. UNITHROID [Concomitant]
     Dosage: 75 MG, UNK
  4. PANTOPRAZOLE [Concomitant]
     Dosage: UNK
  5. CLONAZEPAM [Concomitant]
     Dosage: UNK
  6. ACETYLSALICYLIC ACID [Concomitant]
     Dosage: 81 MG, UNK
  7. ATENOLOL [Concomitant]
     Dosage: UNK
  8. FEMARA [Concomitant]
     Dosage: UNK
  9. SERTRALINE [Concomitant]
     Dosage: UNK
  10. ALPRAZOLAM [Concomitant]
     Dosage: UNK
  11. ARMODAFINIL [Concomitant]
     Dosage: UNK

REACTIONS (3)
  - Insomnia [Not Recovered/Not Resolved]
  - Weight increased [Not Recovered/Not Resolved]
  - Drug dispensing error [Unknown]
